FAERS Safety Report 10749870 (Version 2)
Quarter: 2015Q1

REPORT INFORMATION
  Report Type: Spontaneous
  Country: US (occurrence: US)
  Receive Date: 20150129
  Receipt Date: 20150210
  Transmission Date: 20150721
  Serious: No
  Sender: FDA-Public Use
  Company Number: US-GLAXOSMITHKLINE-A1090281A

PATIENT

DRUGS (1)
  1. TYKERB [Suspect]
     Active Substance: LAPATINIB DITOSYLATE
     Indication: BREAST CANCER METASTATIC
     Dosage: 1250MG AT UNKNOWN DOSING
     Route: 065
     Dates: start: 20140820

REACTIONS (4)
  - Epistaxis [Unknown]
  - Blister [Unknown]
  - Rash pustular [Unknown]
  - Rash [Unknown]

NARRATIVE: CASE EVENT DATE: 201409
